FAERS Safety Report 10528489 (Version 13)
Quarter: 2015Q4

REPORT INFORMATION
  Report Type: Spontaneous
  Country: US (occurrence: US)
  Receive Date: 20141020
  Receipt Date: 20151022
  Transmission Date: 20160304
  Serious: Yes (Hospitalization, Other)
  Sender: FDA-Public Use
  Company Number: US-JNJFOC-20141008254

PATIENT
  Sex: Male

DRUGS (5)
  1. RISPERDAL [Suspect]
     Active Substance: RISPERIDONE
     Indication: SCHIZOPHRENIA
     Dosage: 2 MG AND 1.5 MG
     Route: 048
     Dates: start: 1993, end: 1996
  2. ZYPREXA [Concomitant]
     Active Substance: OLANZAPINE
     Indication: ATTENTION DEFICIT/HYPERACTIVITY DISORDER
     Route: 065
  3. SEROQUEL [Concomitant]
     Active Substance: QUETIAPINE FUMARATE
     Indication: SCHIZOPHRENIA
     Route: 065
  4. DEPAKOTE [Suspect]
     Active Substance: DIVALPROEX SODIUM
     Indication: PRODUCT USED FOR UNKNOWN INDICATION
     Route: 065
  5. RISPERDAL CONSTA [Suspect]
     Active Substance: RISPERIDONE
     Indication: PRODUCT USED FOR UNKNOWN INDICATION
     Route: 030
     Dates: start: 1997

REACTIONS (13)
  - Pain [Unknown]
  - Peripheral swelling [Recovering/Resolving]
  - Gynaecomastia [Recovered/Resolved]
  - Mental disability [Not Recovered/Not Resolved]
  - Emotional distress [Unknown]
  - Adverse event [Unknown]
  - Malaise [Not Recovered/Not Resolved]
  - Stress [Unknown]
  - Chest pain [Recovering/Resolving]
  - Oedema peripheral [Recovering/Resolving]
  - Thrombosis [Unknown]
  - Frustration [Not Recovered/Not Resolved]
  - Pain in extremity [Recovering/Resolving]

NARRATIVE: CASE EVENT DATE: 1993
